FAERS Safety Report 8522872-1 (Version None)
Quarter: 2012Q3

REPORT INFORMATION
  Report Type: 
  Country: None (occurrence: None)
  Receive Date: 20120720
  Receipt Date: 20120711
  Transmission Date: 20120928
  Serious: Yes (Hospitalization)
  Sender: FDA-Public Use
  Company Number: US-BIOGENIDEC-2012BI025399

PATIENT
  Age: 50 Year
  Sex: Female

DRUGS (1)
  1. TYSABRI [Suspect]
     Indication: MULTIPLE SCLEROSIS
     Route: 042
     Dates: start: 20110428

REACTIONS (5)
  - MULTIPLE SCLEROSIS RELAPSE [None]
  - LOCALISED INFECTION [None]
  - PYREXIA [None]
  - MEMORY IMPAIRMENT [None]
  - CENTRAL NERVOUS SYSTEM LESION [None]
